FAERS Safety Report 5805996-9 (Version None)
Quarter: 2008Q3

REPORT INFORMATION
  Report Type: 
  Country: None (occurrence: None)
  Receive Date: 20080710
  Receipt Date: 20080630
  Transmission Date: 20090109
  Serious: Yes (Hospitalization)
  Sender: FDA-Public Use
  Company Number: B0527501A

PATIENT
  Age: 56 Year
  Sex: Male

DRUGS (21)
  1. ZOPHREN [Suspect]
     Indication: PREMEDICATION
     Dosage: 16MG CYCLIC
     Route: 042
     Dates: start: 20080211
  2. BACTRIM [Suspect]
     Indication: DRUG USE FOR UNKNOWN INDICATION
     Route: 048
     Dates: start: 20080211
  3. GEMZAR [Suspect]
     Dosage: 1800MG CYCLIC
     Route: 042
     Dates: start: 20080512
  4. ELOXATIN [Suspect]
     Dosage: 180MG CYCLIC
     Route: 042
     Dates: start: 20080512
  5. MABTHERA [Suspect]
     Dosage: 650MG CYCLIC
     Route: 042
     Dates: start: 20080211
  6. CISPLATYL [Suspect]
     Dosage: 150MG CYCLIC
     Route: 042
     Dates: start: 20080212, end: 20080331
  7. ARACYTINE [Suspect]
     Dosage: 5.3G CYCLIC
     Route: 042
     Dates: start: 20080213, end: 20080402
  8. DEROXAT [Concomitant]
     Route: 048
     Dates: start: 20080301
  9. ZYLORIC [Concomitant]
     Route: 048
  10. VALACYCLOVIR HCL [Concomitant]
     Route: 048
  11. EFFEXOR [Concomitant]
     Dates: start: 20080401
  12. XANAX [Concomitant]
  13. RAMIPRIL [Concomitant]
     Route: 048
  14. FOLIC ACID [Concomitant]
  15. OMEPRAZOLE [Concomitant]
  16. ASPEGIC 325 [Concomitant]
  17. POLARAMINE [Concomitant]
  18. DEXAMETHASONE [Concomitant]
     Route: 065
  19. IFOSFAMIDE [Concomitant]
  20. MESNA [Concomitant]
  21. ETOPOSIDE [Concomitant]

REACTIONS (5)
  - ABDOMINAL PAIN [None]
  - BLOOD AMYLASE INCREASED [None]
  - LIPASE INCREASED [None]
  - PANCREATITIS ACUTE [None]
  - TRANSAMINASES INCREASED [None]
